FAERS Safety Report 6945237-2 (Version None)
Quarter: 2010Q3

REPORT INFORMATION
  Report Type: 
  Country: None (occurrence: None)
  Receive Date: 20100827
  Receipt Date: 20100623
  Transmission Date: 20110219
  Serious: No
  Sender: FDA-Public Use
  Company Number: US-KINGPHARMUSA00001-K201000794

PATIENT
  Age: 66 Year
  Sex: Female
  Weight: 77.098 kg

DRUGS (9)
  1. FLECTOR [Suspect]
     Indication: MUSCLE STRAIN
     Dosage: UNK, SINGLE,
     Route: 061
     Dates: start: 20100622, end: 20100623
  2. MELOXICAM [Concomitant]
     Dosage: 7.5 MG, BID
     Route: 048
  3. LIPITOR [Concomitant]
     Indication: BLOOD CHOLESTEROL INCREASED
     Dosage: 10 MG, QD
     Route: 048
  4. LITHIUM [Concomitant]
     Dosage: 300 MG, TID
     Route: 048
  5. ABILIFY [Concomitant]
     Dosage: 15 MG, QD
     Route: 048
  6. NAMENDA [Concomitant]
     Indication: MEMORY IMPAIRMENT
     Dosage: 10 MG, BID
     Route: 048
  7. EXELON [Concomitant]
     Indication: MEMORY IMPAIRMENT
     Dosage: 9.5 MG, QD
     Route: 061
  8. RESTASIS [Concomitant]
     Indication: EYE DISORDER
     Dosage: UNK
  9. MULTI-VITAMINS [Concomitant]
     Dosage: UNK

REACTIONS (1)
  - HYPOAESTHESIA [None]
